FAERS Safety Report 9652580 (Version 2)
Quarter: 2013Q4

REPORT INFORMATION
  Report Type: Report from Study
  Country: DE (occurrence: IL)
  Receive Date: 20131029
  Receipt Date: 20131120
  Transmission Date: 20140711
  Serious: Yes (Hospitalization)
  Sender: FDA-Public Use
  Company Number: DE-ACTELION-A-NJ2013-90349

PATIENT
  Age: 67 Year
  Sex: Female

DRUGS (6)
  1. VENTAVIS [Suspect]
     Indication: PULMONARY HYPERTENSION
     Dosage: 5 MCG, UNK
     Route: 055
     Dates: start: 20090901
  2. COUMADIN [Concomitant]
     Dosage: UNK
     Dates: end: 201310
  3. VOLIBRIS [Concomitant]
     Dosage: UNK
  4. VIAGRA [Concomitant]
     Dosage: UNK
  5. FOLIC ACID [Concomitant]
     Dosage: UNK
  6. TRIBEMIN [Concomitant]

REACTIONS (4)
  - Pulmonary oedema [Unknown]
  - Pulmonary embolism [Unknown]
  - Pneumonia bacterial [Recovered/Resolved]
  - Fatigue [Recovered/Resolved]
